FAERS Safety Report 9865931 (Version 1)
Quarter: 2014Q1

REPORT INFORMATION
  Report Type: Spontaneous
  Country: IN (occurrence: IN)
  Receive Date: 20140203
  Receipt Date: 20140203
  Transmission Date: 20141002
  Serious: Yes (Death)
  Sender: FDA-Public Use
  Company Number: PHHY2014IN012185

PATIENT
  Age: 19 Year
  Sex: Female

DRUGS (4)
  1. CICLOSPORIN [Suspect]
     Dosage: 5 MG/KG, PER DAY
  2. CEFOTAXIME [Suspect]
     Route: 051
  3. AMIKACIN [Suspect]
     Route: 051
  4. ANDROGENS [Suspect]

REACTIONS (4)
  - Death [Fatal]
  - Premature delivery [Unknown]
  - Maternal exposure during pregnancy [Unknown]
  - Drug ineffective [Unknown]
